FAERS Safety Report 5346106-4 (Version None)
Quarter: 2007Q2

REPORT INFORMATION
  Report Type: 
  Country: None (occurrence: None)
  Receive Date: 20070427
  Receipt Date: 20070209
  Transmission Date: 20071010
  Serious: No
  Sender: FDA-Public Use
  Company Number: 2007-US-000172

PATIENT
  Age: 10 Year
  Sex: Male
  Weight: 20.9 kg

DRUGS (3)
  1. INCRELEX [Suspect]
     Indication: BODY HEIGHT BELOW NORMAL
     Dosage: SEE IMAGE
     Route: 058
     Dates: start: 20061212, end: 20061226
  2. INCRELEX [Suspect]
     Indication: BODY HEIGHT BELOW NORMAL
     Dosage: SEE IMAGE
     Route: 058
     Dates: start: 20061227, end: 20070110
  3. INCRELEX [Suspect]
     Indication: BODY HEIGHT BELOW NORMAL
     Dosage: SEE IMAGE
     Route: 058
     Dates: start: 20070111

REACTIONS (1)
  - GYNAECOMASTIA [None]
